FAERS Safety Report 7062945-6 (Version None)
Quarter: 2010Q4

REPORT INFORMATION
  Report Type: 
  Country: None (occurrence: None)
  Receive Date: 20101026
  Receipt Date: 20100322
  Transmission Date: 20110411
  Serious: Yes (Other)
  Sender: FDA-Public Use
  Company Number: US-PFIZER INC-2010037336

PATIENT
  Sex: Female
  Weight: 58 kg

DRUGS (4)
  1. LIPITOR [Suspect]
     Indication: BLOOD CHOLESTEROL INCREASED
     Dosage: 20 MG, 1X/DAY
     Route: 048
     Dates: start: 20100130, end: 20100312
  2. PLAVIX [Suspect]
     Indication: ANTICOAGULANT THERAPY
     Dosage: UNK
     Route: 048
     Dates: start: 20100130, end: 20100312
  3. MULTI-VITAMINS [Concomitant]
     Dosage: UNK
     Route: 048
  4. CALCIUM [Concomitant]
     Dosage: UNK
     Route: 048

REACTIONS (5)
  - ARTHRALGIA [None]
  - JOINT SWELLING [None]
  - MYALGIA [None]
  - OEDEMA PERIPHERAL [None]
  - PAIN [None]
